FAERS Safety Report 10192749 (Version 1)
Quarter: 2014Q2

REPORT INFORMATION
  Report Type: Spontaneous
  Country: US (occurrence: US)
  Receive Date: 20140523
  Receipt Date: 20140523
  Transmission Date: 20141212
  Serious: No
  Sender: FDA-Public Use
  Company Number: US-LUNDBECK-DKLU1099497

PATIENT
  Sex: Female

DRUGS (2)
  1. SABRIL     (TABLET) [Suspect]
     Indication: EPILEPSY
     Route: 048
  2. SABRIL     (TABLET) [Suspect]
     Indication: EPILEPSY

REACTIONS (1)
  - Gingival swelling [Unknown]
